FAERS Safety Report 21989431 (Version 1)
Quarter: 2023Q1

REPORT INFORMATION
  Report Type: Spontaneous
  Country: US (occurrence: None)
  Receive Date: 20230210
  Receipt Date: 20230210
  Transmission Date: 20230418
  Serious: No
  Sender: FDA-Public Use
  Company Number: None

PATIENT
  Age: 81 Year
  Sex: Female

DRUGS (2)
  1. KISQALI [Suspect]
     Active Substance: RIBOCICLIB
     Dosage: OTHER FREQUENCY : N/A;?
     Route: 048
     Dates: start: 202209
  2. LETROZOLE [Suspect]
     Active Substance: LETROZOLE

REACTIONS (3)
  - Blood creatine increased [None]
  - Dehydration [None]
  - Renal disorder [None]

NARRATIVE: CASE EVENT DATE: 20230118
